FAERS Safety Report 17268797 (Version 1)
Quarter: 2020Q1

REPORT INFORMATION
  Report Type: Spontaneous
  Country: US (occurrence: US)
  Receive Date: 20191223
  Receipt Date: 20191223
  Transmission Date: 20200409
  Serious: No
  Sender: FDA-Public Use
  Company Number: None

PATIENT
  Age: 80 Year
  Sex: Female

DRUGS (10)
  1. MDTOPROLOL TAR TAB 40 MG [Concomitant]
  2. ATORVASTATIN TAB 40 MG [Concomitant]
     Active Substance: ATORVASTATIN
  3. SETRALINE TAB 50 MG [Concomitant]
  4. MULTIPLE VIT TAB [Concomitant]
  5. LANTUS SOLOS INJECTION 100/ML [Concomitant]
  6. ASPIRIN LOW TAB 81 MG [Concomitant]
  7. GLIPIZIDE ER TAB 5 MG [Concomitant]
  8. LASIC TAB 40 MG [Concomitant]
  9. ESBRIET [Suspect]
     Active Substance: PIRFENIDONE
     Indication: IDIOPATHIC PULMONARY FIBROSIS
     Dosage: ?          OTHER DOSE:3 CAPSULES;?
     Route: 048
     Dates: start: 20190604, end: 20191214
  10. OFEV [Suspect]
     Active Substance: NINTEDANIB
     Indication: IDIOPATHIC PULMONARY FIBROSIS
     Dosage: ?          OTHER DOSE:1 CAPSULE;?
     Route: 048
     Dates: start: 20191212

REACTIONS (1)
  - Diarrhoea [None]

NARRATIVE: CASE EVENT DATE: 20191220
